FAERS Safety Report 24641844 (Version 1)
Quarter: 2024Q4

REPORT INFORMATION
  Report Type: Spontaneous
  Country: US (occurrence: US)
  Receive Date: 20241120
  Receipt Date: 20241120
  Transmission Date: 20250114
  Serious: Yes (Other)
  Sender: PFIZER
  Company Number: US-PFIZER INC-PV202400148535

PATIENT
  Age: 42 Year
  Sex: Female

DRUGS (6)
  1. PACLITAXEL [Suspect]
     Active Substance: PACLITAXEL
     Indication: Metaplastic breast carcinoma
     Dosage: 80 MG/M2, ONCE WEEKLY, FOUR CYCLES
     Dates: start: 202109, end: 202203
  2. CARBOPLATIN [Suspect]
     Active Substance: CARBOPLATIN
     Indication: Metaplastic breast carcinoma
     Dosage: AUC 1.5 MG/ML/MIN, WEEKLY (IN THE FIRST 12 WEEKS), FOUR CYCLES
     Dates: start: 202109, end: 202203
  3. DOXORUBICIN HYDROCHLORIDE [Suspect]
     Active Substance: DOXORUBICIN HYDROCHLORIDE
     Indication: Metaplastic breast carcinoma
     Dosage: 60 MG/M2, ONCE EVERY 3 WEEKS, FOUR CYCLES
     Dates: start: 202109, end: 202203
  4. PEMBROLIZUMAB [Suspect]
     Active Substance: PEMBROLIZUMAB
     Indication: Breast cancer
     Dosage: 200 MG, ONCE EVERY 3 WEEKS, FOUR CYCLES
     Dates: start: 202109
  5. PEMBROLIZUMAB [Suspect]
     Active Substance: PEMBROLIZUMAB
     Dosage: 200 MG, ONCE EVERY 3 WEEKS, FOUR CYCLES
     Dates: end: 202203
  6. CYCLOPHOSPHAMIDE [Suspect]
     Active Substance: CYCLOPHOSPHAMIDE
     Indication: Breast cancer
     Dosage: 600 MG/M2, ONCE EVERY 3 WEEKS, (IN THE SUBSEQUENT 12 WEEKS), FOUR CYCLES
     Dates: start: 202109, end: 202203

REACTIONS (2)
  - Immune-mediated hypothyroidism [Unknown]
  - Off label use [Unknown]

NARRATIVE: CASE EVENT DATE: 20210901
